FAERS Safety Report 5334638-4 (Version None)
Quarter: 2007Q2

REPORT INFORMATION
  Report Type: 
  Country: None (occurrence: None)
  Receive Date: 20070525
  Receipt Date: 20070525
  Transmission Date: 20071010
  Serious: Yes (Other)
  Sender: FDA-Public Use
  Company Number: A0652785A

PATIENT
  Sex: Male

DRUGS (1)
  1. AQUAFRESH EXTREME CLEAN WHITENING MINT EXPERIENCE TOOTHPASTE [Suspect]

REACTIONS (4)
  - DIARRHOEA [None]
  - GASTROENTERITIS VIRAL [None]
  - MALAISE [None]
  - PHARMACEUTICAL PRODUCT COMPLAINT [None]
